FAERS Safety Report 12162782 (Version 1)
Quarter: 2016Q1

REPORT INFORMATION
  Report Type: Spontaneous
  Country: US (occurrence: None)
  Receive Date: 20160308
  Receipt Date: 20160308
  Transmission Date: 20160526
  Serious: Yes (Other)
  Sender: FDA-Public Use
  Company Number: None

PATIENT
  Age: 23 Year
  Sex: Female
  Weight: 58.51 kg

DRUGS (3)
  1. MAKENA [Suspect]
     Active Substance: HYDROXYPROGESTERONE CAPROATE
     Indication: HIGH RISK PREGNANCY
     Dosage: STARTED MID-FEBRUARY 2016 1 ML EVERY 7 DAYS INTRAMUSCULAR
     Route: 030
  2. PRENATAL VITAMIN [Concomitant]
     Active Substance: VITAMINS
  3. IRON [Concomitant]
     Active Substance: IRON

REACTIONS (5)
  - Gait disturbance [None]
  - Hip deformity [None]
  - Pelvic pain [None]
  - Diarrhoea [None]
  - Dysstasia [None]

NARRATIVE: CASE EVENT DATE: 20160307
